FAERS Safety Report 7412058-6 (Version None)
Quarter: 2011Q2

REPORT INFORMATION
  Report Type: 
  Country: None (occurrence: None)
  Receive Date: 20110405
  Receipt Date: 20110405
  Transmission Date: 20111010
  Serious: Yes (Hospitalization)
  Sender: FDA-Public Use
  Company Number: None

PATIENT
  Age: 76 Year
  Sex: Male
  Weight: 83 kg

DRUGS (1)
  1. WARFARIN SODIUM [Suspect]
     Dates: start: 20110217

REACTIONS (2)
  - INTERNATIONAL NORMALISED RATIO DECREASED [None]
  - POST PROCEDURAL HAEMATURIA [None]
